FAERS Safety Report 25759996 (Version 2)
Quarter: 2025Q3

REPORT INFORMATION
  Report Type: Report from Study
  Country: US (occurrence: US)
  Receive Date: 20250904
  Receipt Date: 20250912
  Transmission Date: 20251021
  Serious: Yes (Hospitalization, Other)
  Sender: MALLINCKRODT
  Company Number: US-MALLINCKRODT-MNK202505464

PATIENT
  Age: 1 Year
  Sex: Male
  Weight: 12 kg

DRUGS (2)
  1. CORTICOTROPIN [Suspect]
     Active Substance: CORTICOTROPIN
     Indication: Infantile spasms
     Route: 030
     Dates: start: 20250827, end: 20250830
  2. CORTICOTROPIN [Suspect]
     Active Substance: CORTICOTROPIN
     Route: 030
     Dates: start: 20250901

REACTIONS (3)
  - Bradycardia [Unknown]
  - Device dislocation [Unknown]
  - Absence of immediate treatment response [Unknown]

NARRATIVE: CASE EVENT DATE: 20250801
